FAERS Safety Report 9746804 (Version 2)
Quarter: 2013Q4

REPORT INFORMATION
  Report Type: Report from Study
  Country: CA (occurrence: CA)
  Receive Date: 20131211
  Receipt Date: 20131211
  Transmission Date: 20140711
  Serious: Yes (Hospitalization, Other)
  Sender: FDA-Public Use
  Company Number: PHHY2013CA121664

PATIENT
  Age: 71 Year
  Sex: Male

DRUGS (4)
  1. CLOZARIL [Suspect]
     Indication: SCHIZOPHRENIA
     Dosage: 275 MG, DAILY
     Route: 048
     Dates: start: 20090428, end: 20131025
  2. LORAZEPAM [Concomitant]
     Dosage: 2 MG, UNK
  3. RISPERIDONE [Concomitant]
     Dosage: 0.75 MG, DAILY
  4. VENLAFAXINE XR [Concomitant]
     Dosage: 75 MG, DAILY

REACTIONS (5)
  - Psychotic disorder [Unknown]
  - Epilepsy [Unknown]
  - Cerebral atrophy [Unknown]
  - White blood cell count decreased [Recovered/Resolved]
  - Neutrophil count decreased [Recovered/Resolved]
